FAERS Safety Report 6910505-7 (Version None)
Quarter: 2010Q3

REPORT INFORMATION
  Report Type: 
  Country: None (occurrence: None)
  Receive Date: 20100806
  Receipt Date: 20100726
  Transmission Date: 20110219
  Serious: Yes (Other)
  Sender: FDA-Public Use
  Company Number: PHEH2006US11407

PATIENT
  Sex: Male

DRUGS (15)
  1. ZOMETA [Suspect]
     Indication: MULTIPLE MYELOMA
     Dosage: UNK
     Dates: start: 20030205, end: 20050701
  2. THALIDOMIDE [Concomitant]
  3. DECADRON [Concomitant]
  4. GLYBURIDE [Concomitant]
  5. ARANESP [Concomitant]
  6. LISINOPRIL AND HYDROCHLOROTHIAZIDE [Concomitant]
  7. ATENOLOL [Concomitant]
  8. PROCRIT                            /00909301/ [Concomitant]
  9. ASPIRIN [Concomitant]
  10. MULTIVITAMIN ^LAPPE^ [Concomitant]
  11. ACTOS [Concomitant]
  12. PENICILLIN VK [Concomitant]
     Dosage: UNK
  13. PERIDEX [Concomitant]
  14. DOXIL [Concomitant]
  15. THALIDOMID [Concomitant]

REACTIONS (35)
  - ANAEMIA [None]
  - ANXIETY [None]
  - BACK PAIN [None]
  - BLOOD CREATININE INCREASED [None]
  - BLOOD POTASSIUM INCREASED [None]
  - BLOOD UREA INCREASED [None]
  - BONE LESION [None]
  - DECREASED INTEREST [None]
  - DEFORMITY [None]
  - DIZZINESS [None]
  - EMOTIONAL DISTRESS [None]
  - EXCESSIVE GRANULATION TISSUE [None]
  - FALL [None]
  - FATIGUE [None]
  - GENERAL PHYSICAL HEALTH DETERIORATION [None]
  - HYPERGLYCAEMIA [None]
  - HYPOPHAGIA [None]
  - IMPAIRED HEALING [None]
  - INFECTION [None]
  - INTERVERTEBRAL DISC DEGENERATION [None]
  - LIFE EXPECTANCY SHORTENED [None]
  - MALAISE [None]
  - MUCOSAL INFLAMMATION [None]
  - OSTEOARTHRITIS [None]
  - OSTEONECROSIS OF JAW [None]
  - OSTEOPENIA [None]
  - PAIN [None]
  - PAIN IN EXTREMITY [None]
  - PAIN IN JAW [None]
  - SPINAL COLUMN INJURY [None]
  - SWELLING [None]
  - TOOTH EXTRACTION [None]
  - TOOTH FRACTURE [None]
  - WOUND COMPLICATION [None]
  - WOUND DRAINAGE [None]
